FAERS Safety Report 5811893-5 (Version None)
Quarter: 2008Q3

REPORT INFORMATION
  Report Type: 
  Country: None (occurrence: None)
  Receive Date: 20080716
  Receipt Date: 20080703
  Transmission Date: 20090109
  Serious: Yes (Hospitalization)
  Sender: FDA-Public Use
  Company Number: ES-ELI_LILLY_AND_COMPANY-ES200807000995

PATIENT
  Age: 47 Year
  Sex: Female

DRUGS (4)
  1. PROZAC [Suspect]
     Indication: DEPRESSION
     Dosage: 20 MG, DAILY (1/D)
     Route: 048
     Dates: start: 20080201, end: 20080410
  2. ANTABUSE [Concomitant]
     Indication: ALCOHOLISM
     Dosage: 250 MG, 2/D
     Route: 048
     Dates: start: 20080201, end: 20080410
  3. LEXATIN [Concomitant]
     Dosage: 1.5 MG, UNKNOWN
     Route: 048
     Dates: start: 20080201, end: 20080410
  4. ORFIDAL [Concomitant]
     Dosage: 1 MG, DAILY (1/D)
     Route: 048
     Dates: start: 20080201, end: 20080410

REACTIONS (3)
  - BRADYKINESIA [None]
  - BRADYPHRENIA [None]
  - CYTOLYTIC HEPATITIS [None]
